FAERS Safety Report 13348955 (Version 1)
Quarter: 2017Q1

REPORT INFORMATION
  Report Type: Spontaneous
  Country: IN (occurrence: IN)
  Receive Date: 20170320
  Receipt Date: 20170320
  Transmission Date: 20170428
  Serious: No
  Sender: FDA-Public Use
  Company Number: IN-LUPIN PHARMACEUTICALS INC.-E2B_00007048

PATIENT
  Age: 25 Year
  Sex: Male

DRUGS (2)
  1. RIBUTIN [Suspect]
     Active Substance: RIFABUTIN
     Indication: INTESTINAL TUBERCULOSIS
     Dosage: 1 DF,QD,
     Route: 048
     Dates: start: 201608
  2. ISOKIN 300 [Concomitant]
     Active Substance: ISONIAZID
     Indication: INTESTINAL TUBERCULOSIS
     Dosage: 1 DF,QD,
     Route: 048
     Dates: start: 201607

REACTIONS (1)
  - Vomiting [Recovered/Resolved]

NARRATIVE: CASE EVENT DATE: 20161227
